FAERS Safety Report 19375434 (Version 1)
Quarter: 2021Q2

REPORT INFORMATION
  Report Type: Spontaneous
  Country: FR (occurrence: FR)
  Receive Date: 20210604
  Receipt Date: 20210604
  Transmission Date: 20210717
  Serious: Yes (Death, Hospitalization)
  Sender: FDA-Public Use
  Company Number: FR-TEVA-2021-FR-1918195

PATIENT
  Age: 78 Year
  Sex: Male
  Weight: 71 kg

DRUGS (1)
  1. METHOTREXATE (METHOTREXATE SODIUM) [Suspect]
     Active Substance: METHOTREXATE SODIUM
     Indication: DIFFUSE LARGE B-CELL LYMPHOMA STAGE II
     Dosage: UNIT DOSE: 2715 MG
     Route: 042
     Dates: start: 20210413, end: 20210413

REACTIONS (7)
  - Drug level increased [Fatal]
  - Pancytopenia [Fatal]
  - Rash maculo-papular [Not Recovered/Not Resolved]
  - Hiccups [Recovered/Resolved]
  - Mucosal inflammation [Not Recovered/Not Resolved]
  - Acute kidney injury [Fatal]
  - Hepatic cytolysis [Not Recovered/Not Resolved]

NARRATIVE: CASE EVENT DATE: 20210413
